FAERS Safety Report 6891491-5 (Version None)
Quarter: 2010Q3

REPORT INFORMATION
  Report Type: 
  Country: None (occurrence: None)
  Receive Date: 20100731
  Receipt Date: 20070730
  Transmission Date: 20110219
  Serious: No
  Sender: FDA-Public Use
  Company Number: US-PFIZER INC-2007063378

PATIENT

DRUGS (3)
  1. CAMPTOSAR [Suspect]
  2. FLUOROURACIL [Suspect]
  3. FOLINIC ACID [Suspect]

REACTIONS (2)
  - BLOOD MAGNESIUM DECREASED [None]
  - DIARRHOEA [None]
